FAERS Safety Report 6099832-6 (Version None)
Quarter: 2009Q1

REPORT INFORMATION
  Report Type: 
  Country: None (occurrence: None)
  Receive Date: 20090303
  Receipt Date: 20090220
  Transmission Date: 20090719
  Serious: Yes (Hospitalization, Other)
  Sender: FDA-Public Use
  Company Number: PHHY2008MX06941

PATIENT
  Sex: Male

DRUGS (1)
  1. ZELMAC [Suspect]
     Indication: IRRITABLE BOWEL SYNDROME
     Dosage: 6 MG, 2 TAB/DAY
     Route: 048
     Dates: start: 20080301

REACTIONS (3)
  - INFLAMMATION [None]
  - SURGERY [None]
  - THROMBOSIS [None]
